FAERS Safety Report 8337843 (Version 4)
Quarter: 2015Q4

REPORT INFORMATION
  Report Type: Spontaneous
  Country: US (occurrence: US)
  Receive Date: 20120116
  Receipt Date: 20151130
  Transmission Date: 20160305
  Serious: Yes (Other)
  Sender: FDA-Public Use
  Company Number: US-BAYER-2012-002909

PATIENT
  Age: 38 Year
  Sex: Female
  Weight: 97.51 kg

DRUGS (8)
  1. LAMICTAL [Concomitant]
     Active Substance: LAMOTRIGINE
     Dosage: UNK UNK, BID
     Route: 048
     Dates: start: 20080108, end: 20090630
  2. LEVOXYL [Concomitant]
     Active Substance: LEVOTHYROXINE SODIUM
     Dosage: 100 MCG
     Dates: start: 20080807, end: 20100918
  3. GLUCOPHAGE [Concomitant]
     Active Substance: METFORMIN HYDROCHLORIDE
     Dosage: 500 MG, UNK
     Route: 048
     Dates: start: 20080807, end: 20101005
  4. XANAX [Concomitant]
     Active Substance: ALPRAZOLAM
     Dosage: 2 MG, 1 TO 3 TIMES DAILY
     Route: 048
     Dates: start: 20080926, end: 20100915
  5. RISPERIDONE. [Concomitant]
     Active Substance: RISPERIDONE
     Dosage: 6 TO 9 MG
     Dates: start: 20081112, end: 20090324
  6. VALTREX [Concomitant]
     Active Substance: VALACYCLOVIR HYDROCHLORIDE
     Dosage: 500 MG TO 1 GM
     Dates: start: 20080718, end: 20100721
  7. YAZ [Suspect]
     Active Substance: DROSPIRENONE\ETHINYL ESTRADIOL
     Indication: PREMENSTRUAL DYSPHORIC DISORDER
     Dosage: UNK
     Route: 048
     Dates: start: 20080905, end: 20100603
  8. INVEGA [Concomitant]
     Active Substance: PALIPERIDONE
     Dosage: UNK
     Dates: start: 20081112, end: 20090324

REACTIONS (4)
  - Cerebrovascular accident [None]
  - Injury [None]
  - Lacunar stroke [None]
  - Pain [None]

NARRATIVE: CASE EVENT DATE: 20090215
